FAERS Safety Report 16880105 (Version 1)
Quarter: 2019Q4

REPORT INFORMATION
  Report Type: Spontaneous
  Country: US (occurrence: US)
  Receive Date: 20191003
  Receipt Date: 20191003
  Transmission Date: 20200122
  Serious: Yes (Life-Threatening, Hospitalization)
  Sender: FDA-Public Use
  Company Number: US-MYLANLABS-2019M1092105

PATIENT
  Age: 63 Year
  Sex: Male

DRUGS (5)
  1. EPINEPHRINE. [Suspect]
     Active Substance: EPINEPHRINE
     Indication: VASOPRESSIVE THERAPY
     Dosage: 0.2-0.3 MICROG/KG/MINUTE
     Route: 042
  2. VASOPRESSIN. [Concomitant]
     Active Substance: VASOPRESSIN
     Indication: VASOPRESSIVE THERAPY
     Dosage: 0.04 UNITS/MINUTE
     Route: 050
  3. NOREPINEPHRINE. [Concomitant]
     Active Substance: NOREPINEPHRINE
     Indication: VASOPRESSIVE THERAPY
     Dosage: 0.2-0.3 MICROG/KG/MINUTE
     Route: 050
  4. MILRINONE [Concomitant]
     Active Substance: MILRINONE
     Indication: VASOPRESSIVE THERAPY
     Dosage: 0.75 MICROGRAM/KILOGRAM, QMINUTE
     Route: 050
  5. PROTAMINE [Concomitant]
     Active Substance: PROTAMINE
     Indication: PRODUCT USED FOR UNKNOWN INDICATION
     Route: 065

REACTIONS (4)
  - Ventricular fibrillation [Recovered/Resolved]
  - Paradoxical drug reaction [Recovered/Resolved]
  - Condition aggravated [Recovered/Resolved]
  - Ventricular arrhythmia [Recovered/Resolved]
